FAERS Safety Report 18911027 (Version 1)
Quarter: 2021Q1

REPORT INFORMATION
  Report Type: Spontaneous
  Country: CA (occurrence: CA)
  Receive Date: 20210218
  Receipt Date: 20210218
  Transmission Date: 20210420
  Serious: Yes (Other)
  Sender: FDA-Public Use
  Company Number: CA-TEVA-2021-CA-1881031

PATIENT
  Age: 11 Year
  Sex: Male

DRUGS (1)
  1. ETOPOSIDE INJECTION [Suspect]
     Active Substance: ETOPOSIDE
     Dosage: LIQUID INTRAVENOUS

REACTIONS (2)
  - Throat irritation [Recovered/Resolved]
  - Cough [Recovered/Resolved]
